FAERS Safety Report 7678685-6 (Version None)
Quarter: 2011Q3

REPORT INFORMATION
  Report Type: 
  Country: None (occurrence: None)
  Receive Date: 20110811
  Receipt Date: 20110811
  Transmission Date: 20111222
  Serious: Yes (Death, Life-Threatening, Congenital Anomaly)
  Sender: FDA-Public Use
  Company Number: US-ABBOTT-11P-229-0723860-00

PATIENT
  Sex: Female

DRUGS (3)
  1. TRUVADA [Suspect]
     Indication: MATERNAL EXPOSURE DURING PREGNANCY
     Route: 064
  2. NORVIR [Suspect]
     Indication: MATERNAL EXPOSURE DURING PREGNANCY
     Route: 064
  3. REYATAZ [Suspect]
     Indication: MATERNAL EXPOSURE DURING PREGNANCY
     Route: 064

REACTIONS (8)
  - VENTRICULAR SEPTAL DEFECT [None]
  - SMALL FOR DATES BABY [None]
  - CEREBRAL INFARCTION [None]
  - PATENT DUCTUS ARTERIOSUS [None]
  - WITHDRAWAL SYNDROME [None]
  - MATERNAL EXPOSURE DURING PREGNANCY [None]
  - CONVULSION [None]
  - NERVOUS SYSTEM DISORDER [None]
